FAERS Safety Report 9408612 (Version 2)
Quarter: 2014Q2

REPORT INFORMATION
  Report Type: Spontaneous
  Country: US (occurrence: US)
  Receive Date: 20130718
  Receipt Date: 20140408
  Transmission Date: 20141212
  Serious: No
  Sender: FDA-Public Use
  Company Number: US-ASTELLAS-2013US006096

PATIENT
  Sex: Female
  Weight: 69 kg

DRUGS (4)
  1. MYRBETRIQ [Suspect]
     Indication: INCONTINENCE
     Dosage: 50 MG, UID/QD (IN MORNING)
     Route: 048
     Dates: start: 20130508
  2. VESICARE [Suspect]
     Indication: PRODUCT USED FOR UNKNOWN INDICATION
     Dosage: 5 MG, UID/QD (IN EVENING)
     Route: 048
     Dates: start: 20130508
  3. MEDICATION [Concomitant]
     Indication: OSTEOPOROSIS
     Dosage: 1 DF, 1 INJECTION EVERY SIX MONTHS
     Route: 065
  4. SYNTHROID [Concomitant]
     Indication: HYPOTHYROIDISM
     Dosage: UNK
     Route: 065

REACTIONS (4)
  - Drug ineffective [Unknown]
  - Malaise [Unknown]
  - Asthenia [Unknown]
  - Cystitis [Unknown]
